FAERS Safety Report 6919091-9 (Version None)
Quarter: 2010Q3

REPORT INFORMATION
  Report Type: 
  Country: None (occurrence: None)
  Receive Date: 20100811
  Receipt Date: 20100802
  Transmission Date: 20110219
  Serious: Yes (Hospitalization, Other)
  Sender: FDA-Public Use
  Company Number: US-ASTRAZENECA-2006UW16366

PATIENT
  Age: 69 Year
  Sex: Female
  Weight: 79.4 kg

DRUGS (10)
  1. ARIMIDEX [Suspect]
     Indication: INFLAMMATORY CARCINOMA OF THE BREAST
     Route: 048
     Dates: start: 20060101
  2. FASLODEX [Suspect]
     Indication: INFLAMMATORY CARCINOMA OF THE BREAST
     Route: 030
     Dates: start: 20100201
  3. TOPROL-XL [Suspect]
     Indication: HEART RATE IRREGULAR
     Route: 048
     Dates: start: 20050401
  4. ABRAXIN [Suspect]
     Dates: start: 20091001, end: 20100201
  5. CHEMOTHERAPY [Suspect]
     Indication: INFLAMMATORY CARCINOMA OF THE BREAST
  6. RADIATION [Suspect]
     Indication: INFLAMMATORY CARCINOMA OF THE BREAST
  7. HERCEPTIN [Suspect]
     Indication: INFLAMMATORY CARCINOMA OF THE BREAST
  8. GLEEVEC [Concomitant]
     Indication: CHRONIC MYELOID LEUKAEMIA
     Dosage: DAILY
     Route: 048
  9. TOPROL-XL [Concomitant]
     Route: 048
  10. PROTONIX [Concomitant]

REACTIONS (13)
  - CARDIAC DISORDER [None]
  - CARDIAC FAILURE [None]
  - DIZZINESS [None]
  - FATIGUE [None]
  - GENITAL SWELLING [None]
  - HEART RATE IRREGULAR [None]
  - NAUSEA [None]
  - NEOPLASM PROGRESSION [None]
  - OEDEMA PERIPHERAL [None]
  - PLEURISY [None]
  - POLYNEUROPATHY [None]
  - SOMNOLENCE [None]
  - SYNCOPE [None]
